FAERS Safety Report 13766231 (Version 1)
Quarter: 2017Q3

REPORT INFORMATION
  Report Type: Spontaneous
  Country: US (occurrence: US)
  Receive Date: 20170719
  Receipt Date: 20170719
  Transmission Date: 20171127
  Serious: No
  Sender: FDA-Public Use
  Company Number: US-BAUSCH-BL-2016-016888

PATIENT
  Age: 75 Year
  Sex: Female
  Weight: 62.2 kg

DRUGS (5)
  1. XIFAXAN [Suspect]
     Active Substance: RIFAXIMIN
     Indication: LIVER DISORDER
     Route: 048
     Dates: start: 201604
  2. HYDROCHLOROTHIAZIDE. [Concomitant]
     Active Substance: HYDROCHLOROTHIAZIDE
     Indication: JOINT SWELLING
     Dosage: ONE TABLET AS NEEDED
     Route: 048
     Dates: start: 201606
  3. ONDANSETRON [Concomitant]
     Active Substance: ONDANSETRON
     Indication: NAUSEA
     Dosage: ONE TABLET AS NEEDED
     Route: 048
     Dates: start: 201604
  4. AZATHIOPRINE. [Concomitant]
     Active Substance: AZATHIOPRINE
     Indication: CROHN^S DISEASE
     Dosage: ONE AND ONE-HALF TABLET DAILY
     Route: 048
  5. NADOLOL. [Concomitant]
     Active Substance: NADOLOL
     Indication: VARICES OESOPHAGEAL
     Dosage: ONE-HALF TABLET DAILY
     Route: 048
     Dates: start: 2014

REACTIONS (4)
  - Nausea [Recovered/Resolved]
  - Diarrhoea [Recovering/Resolving]
  - Fatigue [Recovered/Resolved]
  - Abdominal discomfort [Unknown]

NARRATIVE: CASE EVENT DATE: 2016
